FAERS Safety Report 13993433 (Version 1)
Quarter: 2017Q3

REPORT INFORMATION
  Report Type: Report from Study
  Country: ES (occurrence: ES)
  Receive Date: 20170920
  Receipt Date: 20170920
  Transmission Date: 20171128
  Serious: Yes (Death, Hospitalization)
  Sender: FDA-Public Use
  Company Number: ES-BAYER-2017-177881

PATIENT
  Age: 86 Year
  Sex: Female

DRUGS (7)
  1. QUETIAPINE. [Concomitant]
     Active Substance: QUETIAPINE
     Indication: ATRIAL FIBRILLATION
  2. DIGOXIN [DIGOXIN] [Concomitant]
     Active Substance: DIGOXIN
     Indication: ATRIAL FIBRILLATION
     Dosage: UNK
     Route: 048
     Dates: start: 20160222, end: 20160229
  3. ADIRO 100 MG COMPRIMIDOS GASTRORRESISTENTES EFG , 30 COMPRIMIDOS [Suspect]
     Active Substance: ASPIRIN
     Indication: THROMBOSIS PROPHYLAXIS
     Dosage: UNK
     Route: 048
     Dates: start: 201309, end: 20160229
  4. QUETIAPINE. [Concomitant]
     Active Substance: QUETIAPINE
     Indication: SENILE DEMENTIA
     Dosage: UNK
     Route: 048
     Dates: end: 20160304
  5. ENOXAPARIN SODIUM. [Interacting]
     Active Substance: ENOXAPARIN SODIUM
     Indication: THROMBOSIS PROPHYLAXIS
     Dosage: UNK
     Route: 058
     Dates: start: 20160216, end: 20160229
  6. QUETIAPINE. [Concomitant]
     Active Substance: QUETIAPINE
     Indication: HYPERTENSION
  7. BISOPROLOL [Concomitant]
     Active Substance: BISOPROLOL
     Indication: HYPERTENSION
     Dosage: UNK
     Route: 048
     Dates: start: 201309, end: 20160304

REACTIONS (1)
  - Abdominal wall haematoma [Fatal]

NARRATIVE: CASE EVENT DATE: 20160229
